FAERS Safety Report 24904648 (Version 1)
Quarter: 2025Q1

REPORT INFORMATION
  Report Type: Spontaneous
  Country: US (occurrence: US)
  Receive Date: 20250130
  Receipt Date: 20250130
  Transmission Date: 20250409
  Serious: No
  Sender: VIIV
  Company Number: US-VIIV HEALTHCARE-US2024165504

PATIENT
  Age: 21 Year
  Sex: Male

DRUGS (3)
  1. CABOTEGRAVIR [Suspect]
     Active Substance: CABOTEGRAVIR
     Indication: Product used for unknown indication
     Dosage: UNK, Q2M (600 MG/3 ML (200 MG/ML))
     Route: 030
     Dates: start: 20221123
  2. CABOTEGRAVIR [Suspect]
     Active Substance: CABOTEGRAVIR
  3. CABOTEGRAVIR [Suspect]
     Active Substance: CABOTEGRAVIR

REACTIONS (3)
  - Hypoaesthesia [Recovering/Resolving]
  - Pain in extremity [Recovered/Resolved]
  - Arthralgia [Recovered/Resolved]

NARRATIVE: CASE EVENT DATE: 20241221
